FAERS Safety Report 5155605-X (Version None)
Quarter: 2006Q4

REPORT INFORMATION
  Report Type: 
  Country: None (occurrence: None)
  Receive Date: 20061113
  Receipt Date: 20061106
  Transmission Date: 20070319
  Serious: Yes (Hospitalization)
  Sender: FDA-Public Use
  Company Number: T200601283

PATIENT
  Age: 68 Year
  Sex: Female
  Weight: 57.6 kg

DRUGS (10)
  1. METHADOSE [Suspect]
     Indication: BACK PAIN
     Dosage: 10 MG, 5 TIMES DAILY, ORAL
     Route: 048
     Dates: start: 20010101
  2. FENTANYL [Suspect]
     Indication: BREAKTHROUGH PAIN
     Dosage: 800 UG, PRN, BUCCAL
     Route: 002
     Dates: start: 20050528, end: 20061012
  3. ATIVAN [Suspect]
     Indication: BACK PAIN
     Dosage: 1 MG, TID, ORAL
     Route: 048
     Dates: start: 20000101
  4. ASPIRIN [Concomitant]
  5. AMBIEN [Concomitant]
  6. LIPITOR [Concomitant]
  7. PREVACID [Concomitant]
  8. LIDODERM (LIDOCAINE) PATCH [Concomitant]
  9. PERCOCET [Concomitant]
  10. LEXAPRO [Concomitant]

REACTIONS (6)
  - ACUTE PSYCHOSIS [None]
  - ANXIETY [None]
  - BODY TEMPERATURE INCREASED [None]
  - LUNG INFILTRATION [None]
  - MULTIPLE DRUG OVERDOSE INTENTIONAL [None]
  - SUICIDE ATTEMPT [None]
